FAERS Safety Report 5971266-1 (Version None)
Quarter: 2008Q4

REPORT INFORMATION
  Report Type: 
  Country: None (occurrence: None)
  Receive Date: 20081128
  Receipt Date: 20081121
  Transmission Date: 20090506
  Serious: Yes (Life-Threatening, Hospitalization)
  Sender: FDA-Public Use
  Company Number: JP-PFIZER INC-2008087904

PATIENT
  Sex: Male
  Weight: 80 kg

DRUGS (1)
  1. UNASYN [Suspect]
     Indication: CELLULITIS
     Dosage: DAILY DOSE:3GRAM-FREQ:FREQUENCY: QD
     Route: 042
     Dates: start: 20081009, end: 20081009

REACTIONS (2)
  - ANAPHYLACTIC SHOCK [None]
  - VENTRICULAR FIBRILLATION [None]
